FAERS Safety Report 4351029-3 (Version None)
Quarter: 2004Q2

REPORT INFORMATION
  Report Type: 
  Country: None (occurrence: None)
  Receive Date: 20040427
  Receipt Date: 20040415
  Transmission Date: 20050107
  Serious: Yes (Death, Other)
  Sender: FDA-Public Use
  Company Number: TR-SHR-04-024060

PATIENT
  Age: 43 Year
  Sex: Female

DRUGS (1)
  1. YASMIN [Suspect]
     Indication: ORAL CONTRACEPTION
     Dosage: 1 TAB (S), 21D/28D, ORAL
     Route: 048

REACTIONS (2)
  - CEREBRAL VENOUS THROMBOSIS [None]
  - HAEMORRHAGE INTRACRANIAL [None]
